FAERS Safety Report 24071182 (Version 1)
Quarter: 2024Q3

REPORT INFORMATION
  Report Type: Report from Study
  Country: CO (occurrence: CO)
  Receive Date: 20240710
  Receipt Date: 20240710
  Transmission Date: 20241016
  Serious: No
  Sender: ROCHE
  Company Number: CO-ROCHE-3560506

PATIENT
  Age: 56 Year
  Sex: Male
  Weight: 75.0 kg

DRUGS (2)
  1. ALECENSA [Suspect]
     Active Substance: ALECTINIB HYDROCHLORIDE
     Indication: Lung neoplasm malignant
     Dosage: 4 CAPSULES OF 150 MG
     Route: 048
  2. ALECENSA [Suspect]
     Active Substance: ALECTINIB HYDROCHLORIDE
     Dosage: 2 CAPSULES OF 150 MG. LAST DOSE ON 07/MAY/2024.
     Route: 048
     Dates: start: 202404

REACTIONS (3)
  - Transaminases increased [Unknown]
  - Fatigue [Unknown]
  - Constipation [Unknown]
